FAERS Safety Report 8604943-4 (Version None)
Quarter: 2012Q3

REPORT INFORMATION
  Report Type: 
  Country: None (occurrence: None)
  Receive Date: 20120807
  Receipt Date: 20120727
  Transmission Date: 20120928
  Serious: Yes (Hospitalization)
  Sender: FDA-Public Use
  Company Number: 2012AP002235

PATIENT
  Age: 26 Year
  Sex: Male

DRUGS (8)
  1. DIVALPROEX SODIUM EXTENDED RELEASE [Suspect]
     Indication: PSYCHOTIC DISORDER
     Dosage: 1500 MG; 2000 MG; QD;
  2. DIVALPROEX SODIUM EXTENDED RELEASE [Suspect]
     Indication: OFF LABEL USE
     Dosage: 1500 MG; 2000 MG; QD;
  3. CLONAZEPAM [Concomitant]
  4. QUETIAPINE FUMARATE [Suspect]
     Indication: PSYCHOTIC DISORDER
     Dosage: 300 MG; 400 MG;  800 MG;
  5. MIRTAZAPINE [Suspect]
     Indication: PSYCHOTIC DISORDER
     Dosage: 30 MG; QD;
  6. MIRTAZAPINE [Suspect]
     Indication: OFF LABEL USE
     Dosage: 30 MG; QD;
  7. HALOPERIDOL [Suspect]
     Indication: PSYCHOTIC DISORDER
  8. QUETIAPINE FUMARATE [Suspect]
     Indication: DELUSION
     Dosage: 100 MG; Q8H;

REACTIONS (10)
  - INSOMNIA [None]
  - OFF LABEL USE [None]
  - DRUG INTERACTION [None]
  - IRRITABILITY [None]
  - DRUG INTOLERANCE [None]
  - SUICIDAL BEHAVIOUR [None]
  - PSYCHOTIC DISORDER [None]
  - DELUSION [None]
  - NEUTROPENIA [None]
  - AGITATION [None]
